FAERS Safety Report 5878496-8 (Version None)
Quarter: 2008Q3

REPORT INFORMATION
  Report Type: 
  Country: None (occurrence: None)
  Receive Date: 20080911
  Receipt Date: 20080409
  Transmission Date: 20090109
  Serious: No
  Sender: FDA-Public Use
  Company Number: US-AMGEN-KDL273794

PATIENT
  Sex: Male

DRUGS (4)
  1. NEUPOGEN [Suspect]
     Indication: CHEMOTHERAPY
     Dates: start: 20080301
  2. NEULASTA [Suspect]
     Indication: CHEMOTHERAPY
     Dates: start: 20040101, end: 20040101
  3. PREDNISONE TAB [Concomitant]
  4. GEMCITABINE [Concomitant]

REACTIONS (4)
  - BONE PAIN [None]
  - HEADACHE [None]
  - MOBILITY DECREASED [None]
  - PYREXIA [None]
